FAERS Safety Report 6047425-9 (Version None)
Quarter: 2009Q1

REPORT INFORMATION
  Report Type: 
  Country: None (occurrence: None)
  Receive Date: 20090122
  Receipt Date: 20090121
  Transmission Date: 20090719
  Serious: Yes (Hospitalization)
  Sender: FDA-Public Use
  Company Number: US-B.I. PHARMACEUTICALS,INC./RIDGEFIELD-2008-BP-19254BP

PATIENT
  Sex: Female

DRUGS (2)
  1. SPIRIVA [Suspect]
     Indication: EMPHYSEMA
     Dosage: 18MCG
     Route: 055
     Dates: start: 20080501, end: 20081224
  2. SPIRIVA [Suspect]
     Dosage: 18MCG
     Route: 055
     Dates: start: 20081230

REACTIONS (4)
  - DIARRHOEA [None]
  - LARYNGITIS [None]
  - SYNCOPE [None]
  - VIRAL INFECTION [None]
